FAERS Safety Report 10756160 (Version 1)
Quarter: 2015Q1

REPORT INFORMATION
  Report Type: Spontaneous
  Country: US (occurrence: None)
  Receive Date: 20150123
  Receipt Date: 20150123
  Transmission Date: 20150721
  Serious: Yes (Other)
  Sender: FDA-Public Use
  Company Number: 2014TUS010448

PATIENT
  Age: 24 Year
  Sex: Female
  Weight: 58.5 kg

DRUGS (10)
  1. PREDNISONE. [Concomitant]
     Active Substance: PREDNISONE
  2. MULTIVITAMIN (ASCORBIC ACID, CALCIUM PANTHOTHENATE, ERGOCALCIFEROL, NICOTINAMIDE, PYRIDOXINE HYDROCHLORIDE, RETINOL, RIBOFLAVIN, THIAMINE HYDROCHLORIDE) [Concomitant]
  3. ACETAMINOPHEN (PARACETAMOL) [Concomitant]
     Active Substance: ACETAMINOPHEN
  4. ENTYVIO [Suspect]
     Active Substance: VEDOLIZUMAB
     Indication: COLITIS ULCERATIVE
     Dosage: 300 MG, FIRST DOSE, INTRAVENOUS
     Route: 042
     Dates: start: 20140820, end: 20140820
  5. IRON [Concomitant]
     Active Substance: IRON
  6. CALCIUM WITH VITAMIN D (CALCIUM CARBONATE, COLECALCIFEROL) [Concomitant]
  7. URSO (URSODEOXYCHOLIC ACID) [Concomitant]
  8. FISH OIL [Concomitant]
     Active Substance: FISH OIL
  9. CLARITIN [Concomitant]
     Active Substance: LORATADINE
  10. CIPRO [Concomitant]
     Active Substance: CIPROFLOXACIN HYDROCHLORIDE

REACTIONS (4)
  - Abdominal pain upper [None]
  - Pruritus [None]
  - Alanine aminotransferase increased [None]
  - Nausea [None]

NARRATIVE: CASE EVENT DATE: 20141003
